FAERS Safety Report 25878027 (Version 1)
Quarter: 2025Q4

REPORT INFORMATION
  Report Type: Spontaneous
  Country: EU (occurrence: EU)
  Receive Date: 20251003
  Receipt Date: 20251003
  Transmission Date: 20260118
  Serious: Yes (Other)
  Sender: MYLAN
  Company Number: EU-MYLANLABS-2025M1083709

PATIENT
  Age: 26 Year
  Sex: Female

DRUGS (68)
  1. SPIRONOLACTONE [Suspect]
     Active Substance: SPIRONOLACTONE
     Indication: Blood pressure management
     Dosage: 25 MILLIGRAM, QD
  2. SPIRONOLACTONE [Suspect]
     Active Substance: SPIRONOLACTONE
     Indication: Blood pressure increased
     Dosage: 25 MILLIGRAM, QD
     Route: 065
  3. SPIRONOLACTONE [Suspect]
     Active Substance: SPIRONOLACTONE
     Dosage: 25 MILLIGRAM, QD
     Route: 065
  4. SPIRONOLACTONE [Suspect]
     Active Substance: SPIRONOLACTONE
     Dosage: 25 MILLIGRAM, QD
  5. TORSEMIDE [Suspect]
     Active Substance: TORSEMIDE
     Indication: Oedema
     Dosage: 5?20 MG DAILY
     Route: 065
  6. TORSEMIDE [Suspect]
     Active Substance: TORSEMIDE
     Dosage: 5?20 MG DAILY
  7. TORSEMIDE [Suspect]
     Active Substance: TORSEMIDE
     Dosage: 5?20 MG DAILY
  8. TORSEMIDE [Suspect]
     Active Substance: TORSEMIDE
     Dosage: 5?20 MG DAILY
     Route: 065
  9. TORSEMIDE [Suspect]
     Active Substance: TORSEMIDE
     Dosage: 15 MILLIGRAM
     Route: 065
  10. TORSEMIDE [Suspect]
     Active Substance: TORSEMIDE
     Dosage: 15 MILLIGRAM
  11. TORSEMIDE [Suspect]
     Active Substance: TORSEMIDE
     Dosage: 15 MILLIGRAM
  12. TORSEMIDE [Suspect]
     Active Substance: TORSEMIDE
     Dosage: 15 MILLIGRAM
     Route: 065
  13. TORSEMIDE [Suspect]
     Active Substance: TORSEMIDE
     Dosage: RESUMED
  14. TORSEMIDE [Suspect]
     Active Substance: TORSEMIDE
     Dosage: RESUMED
  15. TORSEMIDE [Suspect]
     Active Substance: TORSEMIDE
     Dosage: RESUMED
     Route: 065
  16. TORSEMIDE [Suspect]
     Active Substance: TORSEMIDE
     Dosage: RESUMED
     Route: 065
  17. TORSEMIDE [Suspect]
     Active Substance: TORSEMIDE
     Dosage: 10 MILLIGRAM
  18. TORSEMIDE [Suspect]
     Active Substance: TORSEMIDE
     Dosage: 10 MILLIGRAM
  19. TORSEMIDE [Suspect]
     Active Substance: TORSEMIDE
     Dosage: 10 MILLIGRAM
     Route: 065
  20. TORSEMIDE [Suspect]
     Active Substance: TORSEMIDE
     Dosage: 10 MILLIGRAM
     Route: 065
  21. PREDNISOLONE [Suspect]
     Active Substance: PREDNISOLONE
     Indication: Prophylaxis against transplant rejection
     Dosage: 5 MILLIGRAM, QD
  22. PREDNISOLONE [Suspect]
     Active Substance: PREDNISOLONE
     Dosage: 5 MILLIGRAM, QD
     Route: 048
  23. PREDNISOLONE [Suspect]
     Active Substance: PREDNISOLONE
     Dosage: 5 MILLIGRAM, QD
     Route: 048
  24. PREDNISOLONE [Suspect]
     Active Substance: PREDNISOLONE
     Dosage: 5 MILLIGRAM, QD
  25. DILTIAZEM [Suspect]
     Active Substance: DILTIAZEM
     Indication: Blood pressure management
     Dosage: 180 MILLIGRAM, QD
  26. DILTIAZEM [Suspect]
     Active Substance: DILTIAZEM
     Dosage: 180 MILLIGRAM, QD
  27. DILTIAZEM [Suspect]
     Active Substance: DILTIAZEM
     Dosage: 180 MILLIGRAM, QD
     Route: 065
  28. DILTIAZEM [Suspect]
     Active Substance: DILTIAZEM
     Dosage: 180 MILLIGRAM, QD
     Route: 065
  29. DILTIAZEM [Suspect]
     Active Substance: DILTIAZEM
     Dosage: 360 MILLIGRAM
  30. DILTIAZEM [Suspect]
     Active Substance: DILTIAZEM
     Dosage: 360 MILLIGRAM
  31. DILTIAZEM [Suspect]
     Active Substance: DILTIAZEM
     Dosage: 360 MILLIGRAM
     Route: 065
  32. DILTIAZEM [Suspect]
     Active Substance: DILTIAZEM
     Dosage: 360 MILLIGRAM
     Route: 065
  33. PANTOPRAZOLE [Suspect]
     Active Substance: PANTOPRAZOLE
     Indication: Gastrooesophageal reflux disease
     Dosage: 20?80 MG
  34. PANTOPRAZOLE [Suspect]
     Active Substance: PANTOPRAZOLE
     Dosage: 20?80 MG
  35. PANTOPRAZOLE [Suspect]
     Active Substance: PANTOPRAZOLE
     Dosage: 20?80 MG
     Route: 065
  36. PANTOPRAZOLE [Suspect]
     Active Substance: PANTOPRAZOLE
     Dosage: 20?80 MG
     Route: 065
  37. PANTOPRAZOLE [Suspect]
     Active Substance: PANTOPRAZOLE
     Dosage: UNK; DOSE DOUBLED
  38. PANTOPRAZOLE [Suspect]
     Active Substance: PANTOPRAZOLE
     Dosage: UNK; DOSE DOUBLED
  39. PANTOPRAZOLE [Suspect]
     Active Substance: PANTOPRAZOLE
     Dosage: UNK; DOSE DOUBLED
     Route: 065
  40. PANTOPRAZOLE [Suspect]
     Active Substance: PANTOPRAZOLE
     Dosage: UNK; DOSE DOUBLED
     Route: 065
  41. RAMIPRIL [Suspect]
     Active Substance: RAMIPRIL
     Indication: Blood pressure management
     Dosage: 10 MILLIGRAM, QD
  42. RAMIPRIL [Suspect]
     Active Substance: RAMIPRIL
     Indication: Blood pressure increased
     Dosage: 10 MILLIGRAM, QD
     Route: 065
  43. RAMIPRIL [Suspect]
     Active Substance: RAMIPRIL
     Dosage: 10 MILLIGRAM, QD
     Route: 065
  44. RAMIPRIL [Suspect]
     Active Substance: RAMIPRIL
     Dosage: 10 MILLIGRAM, QD
  45. BUDESONIDE [Suspect]
     Active Substance: BUDESONIDE
     Indication: IgA nephropathy
     Dosage: 16 MILLIGRAM, QD
     Dates: start: 202304
  46. BUDESONIDE [Suspect]
     Active Substance: BUDESONIDE
     Dosage: 16 MILLIGRAM, QD
     Route: 065
     Dates: start: 202304
  47. BUDESONIDE [Suspect]
     Active Substance: BUDESONIDE
     Dosage: 16 MILLIGRAM, QD
     Route: 065
     Dates: start: 202304
  48. BUDESONIDE [Suspect]
     Active Substance: BUDESONIDE
     Dosage: 16 MILLIGRAM, QD
     Dates: start: 202304
  49. CYCLOPHOSPHAMIDE [Suspect]
     Active Substance: CYCLOPHOSPHAMIDE
     Indication: IgA nephropathy
     Dosage: UNK
  50. CYCLOPHOSPHAMIDE [Suspect]
     Active Substance: CYCLOPHOSPHAMIDE
     Dosage: UNK
     Route: 065
  51. CYCLOPHOSPHAMIDE [Suspect]
     Active Substance: CYCLOPHOSPHAMIDE
     Dosage: UNK
     Route: 065
  52. CYCLOPHOSPHAMIDE [Suspect]
     Active Substance: CYCLOPHOSPHAMIDE
     Dosage: UNK
  53. MYCOPHENOLIC ACID [Concomitant]
     Active Substance: MYCOPHENOLIC ACID
     Indication: Prophylaxis against transplant rejection
     Dosage: 1.44 MILLIGRAM, QD
  54. MYCOPHENOLIC ACID [Concomitant]
     Active Substance: MYCOPHENOLIC ACID
     Dosage: 1.44 MILLIGRAM, QD
     Route: 065
  55. MYCOPHENOLIC ACID [Concomitant]
     Active Substance: MYCOPHENOLIC ACID
     Dosage: 1.44 MILLIGRAM, QD
     Route: 065
  56. MYCOPHENOLIC ACID [Concomitant]
     Active Substance: MYCOPHENOLIC ACID
     Dosage: 1.44 MILLIGRAM, QD
  57. BELATACEPT [Concomitant]
     Active Substance: BELATACEPT
     Indication: Prophylaxis against transplant rejection
     Dosage: 400 MILLIGRAM
  58. BELATACEPT [Concomitant]
     Active Substance: BELATACEPT
     Dosage: 400 MILLIGRAM
     Route: 065
  59. BELATACEPT [Concomitant]
     Active Substance: BELATACEPT
     Dosage: 400 MILLIGRAM
     Route: 065
  60. BELATACEPT [Concomitant]
     Active Substance: BELATACEPT
     Dosage: 400 MILLIGRAM
  61. DAPAGLIFLOZIN [Concomitant]
     Active Substance: DAPAGLIFLOZIN
     Indication: Chronic kidney disease
     Dosage: 10 MILLIGRAM, QD
  62. DAPAGLIFLOZIN [Concomitant]
     Active Substance: DAPAGLIFLOZIN
     Dosage: 10 MILLIGRAM, QD
     Route: 065
  63. DAPAGLIFLOZIN [Concomitant]
     Active Substance: DAPAGLIFLOZIN
     Dosage: 10 MILLIGRAM, QD
     Route: 065
  64. DAPAGLIFLOZIN [Concomitant]
     Active Substance: DAPAGLIFLOZIN
     Dosage: 10 MILLIGRAM, QD
  65. MOXONIDINE [Concomitant]
     Active Substance: MOXONIDINE
     Indication: Blood pressure increased
     Dosage: 0.3 MILLIGRAM, QD
  66. MOXONIDINE [Concomitant]
     Active Substance: MOXONIDINE
     Dosage: 0.3 MILLIGRAM, QD
     Route: 065
  67. MOXONIDINE [Concomitant]
     Active Substance: MOXONIDINE
     Dosage: 0.3 MILLIGRAM, QD
     Route: 065
  68. MOXONIDINE [Concomitant]
     Active Substance: MOXONIDINE
     Dosage: 0.3 MILLIGRAM, QD

REACTIONS (14)
  - Drug ineffective [Unknown]
  - Haematoma [Not Recovered/Not Resolved]
  - Swelling face [Unknown]
  - Hair growth abnormal [Unknown]
  - Oedema peripheral [Recovering/Resolving]
  - Gastrooesophageal reflux disease [Not Recovered/Not Resolved]
  - Amenorrhoea [Unknown]
  - Petechiae [Recovering/Resolving]
  - Pain in extremity [Recovering/Resolving]
  - Bowel movement irregularity [Recovering/Resolving]
  - Alopecia [Not Recovered/Not Resolved]
  - Arthralgia [Recovering/Resolving]
  - Fatigue [Recovering/Resolving]
  - Menstruation irregular [Unknown]
